FAERS Safety Report 7432688-5 (Version None)
Quarter: 2011Q2

REPORT INFORMATION
  Report Type: 
  Country: None (occurrence: None)
  Receive Date: 20110422
  Receipt Date: 20110415
  Transmission Date: 20111010
  Serious: Yes (Hospitalization, Other)
  Sender: FDA-Public Use
  Company Number: FR-ROCHE-765966

PATIENT
  Sex: Female
  Weight: 40 kg

DRUGS (25)
  1. CONTRAMAL [Concomitant]
     Dates: start: 20110309, end: 20110313
  2. ZOVIRAX [Concomitant]
     Dates: start: 20110314
  3. ZOVIRAX [Concomitant]
     Dates: start: 20110403
  4. MORPHINE [Concomitant]
     Dates: start: 20110402, end: 20110407
  5. TRANXENE [Concomitant]
     Dates: start: 20110312, end: 20110312
  6. ACTINOMYCIN D [Suspect]
     Indication: SARCOMA METASTATIC
     Dosage: DOSAGE FORM: 15MG/M2. DATE OF LAST DOSE PRIOR TO SAE: 23 MARCH 2011.
     Route: 042
     Dates: start: 20110302
  7. SOLUPRED [Concomitant]
     Dates: start: 20110309, end: 20110315
  8. ORANOR [Concomitant]
     Dosage: TDD: 4 DROPSX 6/ DAY
     Dates: start: 20110312, end: 20110402
  9. CLINOMEL [Concomitant]
     Dates: start: 20110402
  10. DOXORUBICINE [Suspect]
     Indication: SARCOMA METASTATIC
     Dosage: FREQUENCY: DAY 1 AND DAY 2. DOSAGE FORM: 30 MG/M2. DATE OF LAST DOSE PRIOR TO SAE: 24 MARCH 2011.
     Route: 042
     Dates: start: 20110303
  11. NORDETTE-21 [Concomitant]
     Dosage: TOTAL DAILY DOSE: 1 EP
     Dates: start: 20110302
  12. NEURONTIN [Concomitant]
     Dates: start: 20110404
  13. BEVACIZUMAB [Suspect]
     Indication: SARCOMA METASTATIC
     Dosage: FREQUENCY: DAY 1. DOSAGE FORM: 7.5 MG/KG. DATE OF LAST DOSE PRIOR TO SAE: 23 MARCH 2011.
     Route: 042
     Dates: start: 20110302
  14. RIVOTRIL [Concomitant]
     Dosage: TDD: 12 DROPS
     Dates: start: 20110305
  15. CANCIDAS [Concomitant]
     Dates: start: 20110405, end: 20110408
  16. CANCIDAS [Concomitant]
  17. FOLEX [Concomitant]
     Dosage: TOTAL DAILY DOSE: 4 SACHETS
     Dates: start: 20110302
  18. MORPHINE [Concomitant]
     Dates: start: 20110313, end: 20110317
  19. IFOSFAMIDE [Suspect]
     Indication: SARCOMA METASTATIC
     Dosage: FREQUENCY: DAY 1- DAY 2. DOSAGE FORM 3 GM/M2. DATE OF LAST DOSE PRIOR TO SAE: 24 MARCH 2011.
     Route: 042
     Dates: start: 20110302
  20. VINCRISTINE [Suspect]
     Indication: SARCOMA METASTATIC
     Dosage: C1, C2, C3 FORM: 15 MG/M2. DATE LAST DOSE PRIOR TO SAE: 06 APRIL  2011
     Route: 042
     Dates: start: 20110302
  21. NORDETTE-21 [Concomitant]
     Dosage: TDD :ICP /DAY
     Dates: start: 20110302
  22. LOVENOX [Concomitant]
     Dates: start: 20110301
  23. PARACETAMOL [Concomitant]
     Dates: start: 20110309
  24. FORLAX [Concomitant]
     Dosage: TDD: 4GR/DAY
     Dates: start: 20110302
  25. ZOVIRAX [Concomitant]
     Dates: start: 20110323

REACTIONS (3)
  - FEBRILE BONE MARROW APLASIA [None]
  - MUCOSAL INFLAMMATION [None]
  - WEIGHT DECREASED [None]
